FAERS Safety Report 5382163-7 (Version None)
Quarter: 2007Q3

REPORT INFORMATION
  Report Type: 
  Country: None (occurrence: None)
  Receive Date: 20070709
  Receipt Date: 20070703
  Transmission Date: 20080115
  Serious: Yes (Other)
  Sender: FDA-Public Use
  Company Number: HQWYE905805JUL07

PATIENT
  Sex: Female
  Weight: 56.75 kg

DRUGS (4)
  1. PREMPRO [Suspect]
     Indication: MENOPAUSE
     Dosage: 0.625MG/2.5MG, FREQUENCY NOT PROVIDED
     Route: 048
     Dates: start: 19770101
  2. LISINOPRIL [Concomitant]
     Route: 065
  3. FISH OIL, HYDROGENATED [Concomitant]
     Dosage: UNKNOWN
     Route: 065
  4. GEMFIBROZIL [Concomitant]
     Route: 065

REACTIONS (1)
  - BLOOD TRIGLYCERIDES INCREASED [None]
